FAERS Safety Report 7226528-7 (Version None)
Quarter: 2010Q4

REPORT INFORMATION
  Report Type: 
  Country: None (occurrence: None)
  Receive Date: 20101126
  Receipt Date: 20100916
  Transmission Date: 20110411
  Serious: No
  Sender: FDA-Public Use
  Company Number: 315178

PATIENT
  Age: 55 Year
  Sex: Female

DRUGS (7)
  1. VICTOZA [Suspect]
     Indication: TYPE 2 DIABETES MELLITUS
     Dosage: 0.6 MG, QD, SUBCUTANEOUS ; 1.2 MG, QD ; 1.8 MG, QD, SUBCUTANEOUS
     Route: 058
     Dates: start: 20100903, end: 20100911
  2. VICTOZA [Suspect]
     Indication: TYPE 2 DIABETES MELLITUS
     Dosage: 0.6 MG, QD, SUBCUTANEOUS ; 1.2 MG, QD ; 1.8 MG, QD, SUBCUTANEOUS
     Route: 058
     Dates: start: 20100912, end: 20100917
  3. VICTOZA [Suspect]
     Indication: TYPE 2 DIABETES MELLITUS
     Dosage: 0.6 MG, QD, SUBCUTANEOUS ; 1.2 MG, QD ; 1.8 MG, QD, SUBCUTANEOUS
     Route: 058
     Dates: start: 20100918
  4. COREG [Concomitant]
  5. DIOVAN [Concomitant]
  6. LASIX [Concomitant]
  7. GLYBURIDE [Concomitant]

REACTIONS (5)
  - BLOOD GLUCOSE FLUCTUATION [None]
  - BLOOD PRESSURE DECREASED [None]
  - DIZZINESS [None]
  - POLLAKIURIA [None]
  - WEIGHT DECREASED [None]
